FAERS Safety Report 8218060-9 (Version None)
Quarter: 2012Q1

REPORT INFORMATION
  Report Type: 
  Country: None (occurrence: None)
  Receive Date: 20120319
  Receipt Date: 20120313
  Transmission Date: 20120608
  Serious: Yes (Hospitalization)
  Sender: FDA-Public Use
  Company Number: US-PFIZER INC-2012067525

PATIENT
  Sex: Female
  Weight: 39 kg

DRUGS (10)
  1. VITAMIN D [Concomitant]
     Dosage: UNK
  2. SUTENT [Suspect]
     Indication: RENAL CELL CARCINOMA
     Dosage: 50 MG, UNK
     Dates: start: 20120306, end: 20120312
  3. LIPITOR [Concomitant]
     Dosage: UNK
  4. LEVOTHYROXINE [Concomitant]
     Dosage: UNK
  5. ALPRAZOLAM [Concomitant]
     Dosage: UNK
  6. TRICOR [Concomitant]
     Dosage: UNK
  7. STOOL SOFTENER [Concomitant]
     Dosage: UNK
  8. LANTUS [Concomitant]
  9. NOVOLOG [Concomitant]
  10. GABAPENTIN [Concomitant]
     Dosage: 100 MG TO 200 MG

REACTIONS (7)
  - VOMITING [None]
  - SKIN BURNING SENSATION [None]
  - DEHYDRATION [None]
  - VIRAL INFECTION [None]
  - ABDOMINAL PAIN [None]
  - DIARRHOEA [None]
  - NAUSEA [None]
